FAERS Safety Report 9185426 (Version 1)
Quarter: 2013Q1

REPORT INFORMATION
  Report Type: Spontaneous
  Country: US (occurrence: None)
  Receive Date: 20130321
  Receipt Date: 20130321
  Transmission Date: 20140127
  Serious: Yes (Other)
  Sender: FDA-Public Use
  Company Number: 2013AP003615

PATIENT
  Sex: Male

DRUGS (8)
  1. CITALOPRAM (CITALOPRAM) [Suspect]
     Indication: DEPRESSION
  2. LITHIUM (LITHIUM) [Concomitant]
  3. VALPROATE SODIUM (VALPROATE SODIUM) [Concomitant]
  4. CITALOPRAM (CITALOPRAM) [Concomitant]
  5. FLUOXETINE (FLUOXETINE) [Concomitant]
  6. LAMOTRIGINE (LAMOTRIGINE) [Suspect]
     Indication: PRODUCT USED FOR UNKNOWN INDICATION
  7. QUETIAPINE [Suspect]
     Indication: BIPOLAR II DISORDER
  8. FLUOXETINE [Suspect]
     Indication: INTENTIONAL OVERDOSE

REACTIONS (10)
  - Convulsion [None]
  - Bipolar II disorder [None]
  - Intentional overdose [None]
  - Suicide attempt [None]
  - Migraine [None]
  - Oral pain [None]
  - Incontinence [None]
  - Somnolence [None]
  - Epilepsy [None]
  - Alcohol use [None]
